FAERS Safety Report 5358473-6 (Version None)
Quarter: 2007Q2

REPORT INFORMATION
  Report Type: 
  Country: None (occurrence: None)
  Receive Date: 20070614
  Receipt Date: 20070614
  Transmission Date: 20071010
  Serious: Yes (Other)
  Sender: FDA-Public Use
  Company Number: None

PATIENT
  Sex: Male
  Weight: 81.6475 kg

DRUGS (9)
  1. LITHIUM CARBONATE [Suspect]
     Indication: IRRITABILITY
     Dosage: 300 MG BID TO TID TO BID PO
     Route: 048
     Dates: start: 20070316, end: 20070418
  2. LITHIUM CARBONATE [Suspect]
     Dosage: 300MG BID PO
     Route: 048
     Dates: start: 20070418, end: 20070504
  3. FAZACLO ODT [Concomitant]
  4. INVEGA [Concomitant]
  5. LISINOPRIL [Concomitant]
  6. ATROPINE [Concomitant]
  7. RISPERDAL [Concomitant]
  8. RISPERDAL CONSTA [Concomitant]
  9. DEPAKOTE ER [Concomitant]

REACTIONS (8)
  - BALANCE DISORDER [None]
  - COMMUNICATION DISORDER [None]
  - HYPOTONIA [None]
  - ILL-DEFINED DISORDER [None]
  - MYOCLONUS [None]
  - POSTURE ABNORMAL [None]
  - SPINAL DISORDER [None]
  - TREMOR [None]
